FAERS Safety Report 12265254 (Version 1)
Quarter: 2016Q2

REPORT INFORMATION
  Report Type: Spontaneous
  Country: GB (occurrence: GB)
  Receive Date: 20160413
  Receipt Date: 20160413
  Transmission Date: 20160815
  Serious: Yes (Hospitalization)
  Sender: FDA-Public Use
  Company Number: GB-TEVA-649830ACC

PATIENT
  Age: 89 Year

DRUGS (9)
  1. BISOPROLOL [Concomitant]
     Active Substance: BISOPROLOL
     Dosage: 2.5 MILLIGRAM DAILY;
  2. CARBOMER [Concomitant]
     Active Substance: CARBOMER
     Dosage: .2 PERCENT DAILY; IN THE EVENING; DAILY DOSE: 0.2PERCENT
  3. FUROSEMIDE. [Concomitant]
     Active Substance: FUROSEMIDE
     Dosage: 40 MILLIGRAM DAILY;
  4. ASPIRIN. [Concomitant]
     Active Substance: ASPIRIN
     Dosage: 75 MILLIGRAM DAILY;
  5. OXYBUTYNIN [Concomitant]
     Active Substance: OXYBUTYNIN
     Dosage: 5 MILLIGRAM DAILY;
  6. SIMVASTATIN. [Suspect]
     Active Substance: SIMVASTATIN
     Dosage: 40 MILLIGRAM DAILY; IN THE EVENING; DAILY DOSE: 40MILLIGRAM
  7. NITRAZEPAM [Concomitant]
     Active Substance: NITRAZEPAM
     Dosage: 10 ML DAILY; IN THE EVENING; DAILY DOSE: 10ML
  8. OMEPRAZOLE. [Concomitant]
     Active Substance: OMEPRAZOLE
     Dosage: 40 MILLIGRAM DAILY;
  9. PARACETAMOL [Concomitant]
     Active Substance: ACETAMINOPHEN
     Dosage: 3 GRAM DAILY;

REACTIONS (6)
  - Dysarthria [Unknown]
  - Facial paralysis [Unknown]
  - Cerebrovascular accident [Unknown]
  - Acute kidney injury [Unknown]
  - Liver function test increased [Recovering/Resolving]
  - Hemiplegia [Unknown]
